FAERS Safety Report 25170300 (Version 1)
Quarter: 2025Q2

REPORT INFORMATION
  Report Type: Spontaneous
  Country: CN (occurrence: CN)
  Receive Date: 20250408
  Receipt Date: 20250408
  Transmission Date: 20250717
  Serious: Yes (Other)
  Sender: ABBVIE
  Company Number: CN-ABBOTT-2025A-1397952

PATIENT
  Age: 40 Year
  Sex: Male
  Weight: 85 kg

DRUGS (2)
  1. FENOFIBRATE [Suspect]
     Active Substance: FENOFIBRATE
     Indication: Myasthenia gravis
     Route: 048
     Dates: start: 20250323, end: 20250326
  2. CYCLOSPORINE [Suspect]
     Active Substance: CYCLOSPORINE
     Indication: Myasthenia gravis
     Route: 048
     Dates: start: 20250321, end: 20250331

REACTIONS (1)
  - Transaminases increased [Recovering/Resolving]

NARRATIVE: CASE EVENT DATE: 20250325
